FAERS Safety Report 7689308-4 (Version None)
Quarter: 2011Q3

REPORT INFORMATION
  Report Type: 
  Country: None (occurrence: None)
  Receive Date: 20110817
  Receipt Date: 20110809
  Transmission Date: 20111222
  Serious: Yes (Hospitalization, Other)
  Sender: FDA-Public Use
  Company Number: US-BAYER-201040335NA

PATIENT
  Age: 19 Year
  Sex: Female
  Weight: 62 kg

DRUGS (8)
  1. PRILOSEC [Concomitant]
     Dosage: 20 MG, UNK
     Dates: start: 20070101, end: 20080101
  2. IBUPROFEN [Concomitant]
     Indication: HEADACHE
     Dosage: UNK
     Dates: start: 20080101
  3. YAZ [Suspect]
     Indication: ORAL CONTRACEPTION
     Dosage: UNK UNK, UNK
     Route: 048
     Dates: start: 20070101, end: 20080101
  4. MAXIMUM STRENGTH COUGH AND COLD [Concomitant]
  5. LEVOXEL [Concomitant]
     Indication: HYPERTHYROIDISM
     Dosage: UNK
     Dates: start: 20080101
  6. PREDNISONE [Concomitant]
     Dosage: 20 MG, UNK
     Dates: start: 20080331
  7. HYDROXYZINE HCL [Concomitant]
     Dosage: UNK
     Dates: start: 20080331
  8. PAXIL [Concomitant]

REACTIONS (2)
  - CHOLELITHIASIS [None]
  - CHOLECYSTITIS CHRONIC [None]
